FAERS Safety Report 7267928-9 (Version None)
Quarter: 2011Q1

REPORT INFORMATION
  Report Type: 
  Country: None (occurrence: None)
  Receive Date: 20110201
  Receipt Date: 20110120
  Transmission Date: 20110831
  Serious: Yes (Other)
  Sender: FDA-Public Use
  Company Number: US-ELI_LILLY_AND_COMPANY-US201101005749

PATIENT
  Sex: Male

DRUGS (1)
  1. ZYPREXA [Suspect]
     Indication: SCHIZOPHRENIA
     Dosage: UNK, UNK
     Dates: start: 19980101, end: 20010101

REACTIONS (30)
  - LOSS OF CONSCIOUSNESS [None]
  - DYSARTHRIA [None]
  - MEMORY IMPAIRMENT [None]
  - DROOLING [None]
  - IMPAIRED DRIVING ABILITY [None]
  - FEAR OF DEATH [None]
  - FALL [None]
  - DYSPHAGIA [None]
  - FEELING COLD [None]
  - BLOOD CHOLESTEROL INCREASED [None]
  - DRUG INEFFECTIVE [None]
  - HYPERHIDROSIS [None]
  - MYOCARDIAL INFARCTION [None]
  - VISION BLURRED [None]
  - SENSATION OF HEAVINESS [None]
  - SKIN DISCOLOURATION [None]
  - ADVERSE EVENT [None]
  - CONFUSIONAL STATE [None]
  - LOSS OF EMPLOYMENT [None]
  - HEART RATE INCREASED [None]
  - COLD SWEAT [None]
  - ROAD TRAFFIC ACCIDENT [None]
  - SWEAT GLAND DISORDER [None]
  - PRODUCT SIZE ISSUE [None]
  - HEADACHE [None]
  - ANXIETY [None]
  - DYSPNOEA [None]
  - DYSPEPSIA [None]
  - HEART RATE DECREASED [None]
  - TREMOR [None]
